FAERS Safety Report 9022084 (Version 1)
Quarter: 2013Q1

REPORT INFORMATION
  Report Type: Spontaneous
  Country: CH (occurrence: CH)
  Receive Date: 20130118
  Receipt Date: 20130118
  Transmission Date: 20140127
  Serious: Yes (Other)
  Sender: FDA-Public Use
  Company Number: CH-GLAXOSMITHKLINE-B0842984A

PATIENT
  Age: 44 Year
  Sex: Female

DRUGS (3)
  1. MALARONE [Suspect]
     Indication: PRODUCT USED FOR UNKNOWN INDICATION
     Route: 065
     Dates: start: 20121006
  2. STAMARIL [Suspect]
     Indication: YELLOW FEVER IMMUNISATION
     Route: 065
     Dates: start: 20120927, end: 20120927
  3. METRONIDAZOLE [Suspect]
     Indication: PRODUCT USED FOR UNKNOWN INDICATION
     Dosage: 500MG PER DAY
     Route: 065
     Dates: start: 201209, end: 201209

REACTIONS (2)
  - Exposure during pregnancy [Unknown]
  - Maternal exposure before pregnancy [Unknown]
